FAERS Safety Report 20976511 (Version 1)
Quarter: 2022Q2

REPORT INFORMATION
  Report Type: Spontaneous
  Country: KR (occurrence: None)
  Receive Date: 20220617
  Receipt Date: 20220617
  Transmission Date: 20220721
  Serious: Yes (Death)
  Sender: FDA-Public Use
  Company Number: 2022A223940

PATIENT
  Age: 70 Year
  Sex: Female

DRUGS (3)
  1. TAGRISSO [Suspect]
     Active Substance: OSIMERTINIB
     Dosage: 11 TABLETS
     Route: 048
     Dates: start: 20211224
  2. TAGRISSO [Suspect]
     Active Substance: OSIMERTINIB
     Dosage: 35 TABLETS.
     Route: 048
     Dates: start: 20220103
  3. TAGRISSO [Suspect]
     Active Substance: OSIMERTINIB
     Dosage: 20 TABLETS.
     Route: 048
     Dates: start: 20220121

REACTIONS (1)
  - Lung neoplasm malignant [Fatal]

NARRATIVE: CASE EVENT DATE: 20220328
